FAERS Safety Report 4689374-4 (Version None)
Quarter: 2005Q2

REPORT INFORMATION
  Report Type: 
  Country: None (occurrence: None)
  Receive Date: 20050608
  Receipt Date: 20050209
  Transmission Date: 20051028
  Serious: No
  Sender: FDA-Public Use
  Company Number: 2005-BP-01204BP

PATIENT
  Age: 69 Year
  Sex: Female
  Weight: 67 kg

DRUGS (7)
  1. SPIRIVA [Suspect]
     Indication: CHRONIC OBSTRUCTIVE PULMONARY DISEASE
     Dosage: 18 MCG (18 MCG, QD), IH
     Route: 055
     Dates: start: 20040601, end: 20050117
  2. ALBUTEROL [Concomitant]
  3. PREVACID [Concomitant]
  4. VALIUM [Concomitant]
  5. BENTYL [Concomitant]
  6. ULTRACET(ULTRACET) [Concomitant]
  7. SPIRIVA [Suspect]

REACTIONS (8)
  - ABDOMINAL DISCOMFORT [None]
  - BURNING SENSATION [None]
  - COUGH [None]
  - DYSPHONIA [None]
  - PAIN [None]
  - PALPITATIONS [None]
  - URINARY RETENTION [None]
  - URINARY TRACT OBSTRUCTION [None]
